FAERS Safety Report 9002797 (Version 1)
Quarter: 2012Q4

REPORT INFORMATION
  Report Type: Spontaneous
  Country: VE (occurrence: None)
  Receive Date: 20121226
  Receipt Date: 20121226
  Transmission Date: 20130627
  Serious: Yes (Other)
  Sender: FDA-Public Use
  Company Number: VE-ACCORD-015645

PATIENT
  Age: 40 Year
  Sex: Female

DRUGS (2)
  1. QUETIAPINE FUMARATE (QUETIAPINE FUMARATE) [Suspect]
     Indication: BIPOLAR DISORDER
  2. LITHIUM CARBONATE [Suspect]
     Indication: BIPOLAR DISORDER

REACTIONS (2)
  - Hyperandrogenism [None]
  - Off label use [None]
